FAERS Safety Report 5940541-9 (Version None)
Quarter: 2008Q4

REPORT INFORMATION
  Report Type: 
  Country: None (occurrence: None)
  Receive Date: 20081104
  Receipt Date: 20081028
  Transmission Date: 20090506
  Serious: Yes (Other)
  Sender: FDA-Public Use
  Company Number: US-MERCK-0809USA01961

PATIENT
  Age: 64 Year
  Sex: Male
  Weight: 80 kg

DRUGS (9)
  1. ZOLINZA [Suspect]
     Indication: MYCOSIS FUNGOIDES
     Route: 048
     Dates: start: 20080821, end: 20081006
  2. ZOLINZA [Suspect]
     Route: 048
     Dates: start: 20081007, end: 20081015
  3. ANTINEOPLASTIC (UNSPECIFIED) [Concomitant]
     Route: 048
  4. INTRON A [Suspect]
     Route: 058
  5. INTRON A [Suspect]
     Route: 058
  6. CORTICOSTEROIDS (UNSPECIFIED) [Concomitant]
     Route: 065
  7. ASPIRIN [Concomitant]
     Route: 065
  8. LUNESTA [Concomitant]
     Route: 065
  9. TRICOR [Concomitant]
     Indication: LIPIDS INCREASED
     Route: 065

REACTIONS (2)
  - DEAFNESS [None]
  - WEIGHT DECREASED [None]
